FAERS Safety Report 15427821 (Version 2)
Quarter: 2018Q4

REPORT INFORMATION
  Report Type: Report from Study
  Country: None (occurrence: US)
  Receive Date: 20180926
  Receipt Date: 20181119
  Transmission Date: 20190204
  Serious: Yes (Hospitalization)
  Sender: FDA-Public Use
  Company Number: US-ABBVIE-18K-163-2496931-00

PATIENT
  Age: 66 Year
  Sex: Male
  Weight: 71.73 kg

DRUGS (1)
  1. HUMIRA [Suspect]
     Active Substance: ADALIMUMAB
     Indication: RHEUMATOID ARTHRITIS
     Route: 058

REACTIONS (4)
  - Vomiting [Unknown]
  - Fluid retention [Unknown]
  - Pulmonary oedema [Unknown]
  - Kidney infection [Unknown]

NARRATIVE: CASE EVENT DATE: 201809
